FAERS Safety Report 18225580 (Version 1)
Quarter: 2020Q3

REPORT INFORMATION
  Report Type: Spontaneous
  Country: US (occurrence: US)
  Receive Date: 20200903
  Receipt Date: 20200903
  Transmission Date: 20201103
  Serious: No
  Sender: FDA-Public Use
  Company Number: US-GILEAD-2020-0492972

PATIENT
  Age: 40 Year

DRUGS (1)
  1. EPCLUSA [Suspect]
     Active Substance: SOFOSBUVIR\VELPATASVIR
     Indication: HEPATITIS C RNA POSITIVE
     Dosage: UNK UNK, QD
     Route: 048
     Dates: start: 20200713, end: 20200827

REACTIONS (1)
  - Rash [Unknown]
